FAERS Safety Report 13597930 (Version 2)
Quarter: 2017Q4

REPORT INFORMATION
  Report Type: Spontaneous
  Country: IT (occurrence: IT)
  Receive Date: 20170531
  Receipt Date: 20171222
  Transmission Date: 20180320
  Serious: Yes (Death, Hospitalization, Other)
  Sender: FDA-Public Use
  Company Number: IT-ELI_LILLY_AND_COMPANY-IT201705010769

PATIENT
  Age: 74 Year
  Sex: Male
  Weight: 63 kg

DRUGS (12)
  1. AMOXICILLIN/CLAVULANIC ACID ACTAVIS [Suspect]
     Active Substance: AMOXICILLIN\CLAVULANIC ACID
     Indication: PYREXIA
     Dosage: UNK UNK, UNKNOWN
     Route: 065
     Dates: start: 20170505
  2. ALIMTA [Suspect]
     Active Substance: PEMETREXED DISODIUM
     Indication: LUNG ADENOCARCINOMA
     Dosage: 870 MG, CYCLICAL
     Route: 042
     Dates: start: 20170428, end: 20170428
  3. APIXABAN [Concomitant]
     Active Substance: APIXABAN
     Indication: ATRIAL FIBRILLATION
     Dosage: 10 MG, UNKNOWN
     Route: 048
  4. BISOPROLOL FUMARATE. [Concomitant]
     Active Substance: BISOPROLOL FUMARATE
     Indication: ATRIAL FIBRILLATION
     Dosage: 2.5 MG, UNKNOWN
     Route: 048
  5. ALLOPURINOL. [Concomitant]
     Active Substance: ALLOPURINOL
     Indication: HYPERURICAEMIA
     Dosage: 100 MG, UNKNOWN
     Route: 048
  6. FUROSEMIDE. [Concomitant]
     Active Substance: FUROSEMIDE
     Indication: HYPERTENSION
     Dosage: 25 MG, UNKNOWN
     Route: 048
  7. TAMSULOSIN HYDROCHLORIDE. [Concomitant]
     Active Substance: TAMSULOSIN HYDROCHLORIDE
     Indication: BENIGN PROSTATIC HYPERPLASIA
     Dosage: 0.4 MG, UNKNOWN
     Route: 048
  8. ROSUVASTATIN CALCIUM. [Concomitant]
     Active Substance: ROSUVASTATIN CALCIUM
     Indication: DYSLIPIDAEMIA
     Dosage: 10 MG, UNKNOWN
     Route: 048
  9. PREDNISONE. [Concomitant]
     Active Substance: PREDNISONE
     Indication: PROPHYLAXIS
     Dosage: 50 MG, UNKNOWN
     Route: 048
  10. CARBOPLATINO AHCL [Suspect]
     Active Substance: CARBOPLATIN
     Indication: LUNG ADENOCARCINOMA
     Dosage: 410 MG, CYCLICAL
     Route: 042
     Dates: start: 20170428, end: 20170428
  11. FOLIC ACID. [Concomitant]
     Active Substance: FOLIC ACID
     Indication: PROPHYLAXIS
     Dosage: 400 UG, UNKNOWN
     Route: 048
  12. ESCITALOPRAM [Concomitant]
     Active Substance: ESCITALOPRAM OXALATE
     Indication: ANXIETY
     Dosage: 10 MG, UNKNOWN
     Route: 048

REACTIONS (16)
  - Diarrhoea [Fatal]
  - Neutropenia [Fatal]
  - Blood magnesium decreased [Unknown]
  - C-reactive protein increased [Unknown]
  - Hypokalaemia [Fatal]
  - Pyrexia [Unknown]
  - Pancytopenia [Unknown]
  - Mucosal inflammation [Fatal]
  - Blood bilirubin increased [Unknown]
  - Blood phosphorus decreased [Unknown]
  - General physical health deterioration [Fatal]
  - Thrombocytopenia [Fatal]
  - Blood potassium decreased [Unknown]
  - Anaemia [Fatal]
  - Off label use [Unknown]
  - Blood fibrinogen increased [Unknown]

NARRATIVE: CASE EVENT DATE: 20170510
